FAERS Safety Report 6714545-2 (Version None)
Quarter: 2010Q2

REPORT INFORMATION
  Report Type: 
  Country: None (occurrence: None)
  Receive Date: 20100506
  Receipt Date: 20100423
  Transmission Date: 20101027
  Serious: Yes (Hospitalization, Other)
  Sender: FDA-Public Use
  Company Number: DE-MYLANLABS-2009S1003467

PATIENT
  Age: 71 Year
  Sex: Female
  Weight: 85 kg

DRUGS (12)
  1. BISOPROLOL [Interacting]
     Indication: HYPERTENSION
     Route: 048
     Dates: start: 20000101, end: 20080801
  2. BISOPROLOL [Interacting]
     Route: 048
     Dates: start: 20080801, end: 20080801
  3. BISOPROLOL [Interacting]
     Route: 048
     Dates: start: 20081005
  4. AMLODIPINE [Suspect]
     Indication: HYPERTENSION
     Route: 048
     Dates: start: 20000101
  5. ASPIRIN [Concomitant]
     Indication: MYOCARDIAL INFARCTION
     Route: 048
     Dates: start: 20080922
  6. DOXEPIN HCL [Concomitant]
     Indication: DEPRESSION
     Route: 048
     Dates: start: 20080901
  7. HYDROCHLOROTHIAZIDE [Concomitant]
     Indication: HYPERTENSION
     Route: 048
     Dates: start: 20000101
  8. MANINIL [Concomitant]
     Indication: TYPE 2 DIABETES MELLITUS
     Route: 048
     Dates: start: 19920101
  9. PANTOZOL [Concomitant]
     Indication: DUODENAL ULCER
     Route: 048
     Dates: start: 20080922
  10. PLAVIX [Concomitant]
     Indication: MYOCARDIAL INFARCTION
     Route: 048
     Dates: start: 20080922
  11. RAMIPRIL [Concomitant]
     Indication: HYPERTENSION
     Route: 048
     Dates: start: 20080901
  12. SIMVASTATIN [Concomitant]
     Indication: HYPERLIPIDAEMIA
     Route: 048
     Dates: start: 20080830

REACTIONS (2)
  - BRADYCARDIA [None]
  - DRUG INTERACTION [None]
